FAERS Safety Report 14859237 (Version 1)
Quarter: 2018Q2

REPORT INFORMATION
  Report Type: Spontaneous
  Country: US (occurrence: US)
  Receive Date: 20180508
  Receipt Date: 20180508
  Transmission Date: 20180711
  Serious: Yes (Hospitalization, Other)
  Sender: FDA-Public Use
  Company Number: US-AUROBINDO-AUR-APL-2018-023659

PATIENT
  Age: 30 Year
  Sex: Male

DRUGS (3)
  1. LOPERAMIDE HYDROCHLORIDE TABLETS USP (OTC) [Suspect]
     Active Substance: LOPERAMIDE HYDROCHLORIDE
     Indication: PRODUCT USED FOR UNKNOWN INDICATION
     Dosage: 250 TABLETS OF 2 MILLIGRAM
     Route: 048
  2. LOPERAMIDE HYDROCHLORIDE TABLETS USP (OTC) [Suspect]
     Active Substance: LOPERAMIDE HYDROCHLORIDE
     Dosage: 140 MILLIGRAM
     Route: 048
  3. LOPERAMIDE HYDROCHLORIDE TABLETS USP (OTC) [Suspect]
     Active Substance: LOPERAMIDE HYDROCHLORIDE
     Dosage: 100 MILLIGRAM
     Route: 048

REACTIONS (10)
  - Yawning [Recovering/Resolving]
  - Insomnia [Recovering/Resolving]
  - Diarrhoea [Recovering/Resolving]
  - Withdrawal syndrome [Recovering/Resolving]
  - Piloerection [Recovering/Resolving]
  - Overdose [Unknown]
  - Electrocardiogram QT prolonged [Recovering/Resolving]
  - Hyperhidrosis [Recovering/Resolving]
  - Vomiting [Recovering/Resolving]
  - Intentional product misuse [Unknown]
